FAERS Safety Report 7580594-8 (Version None)
Quarter: 2011Q2

REPORT INFORMATION
  Report Type: 
  Country: None (occurrence: None)
  Receive Date: 20110629
  Receipt Date: 20110622
  Transmission Date: 20111010
  Serious: Yes (Life-Threatening, Other)
  Sender: FDA-Public Use
  Company Number: B0728016A

PATIENT
  Sex: Female

DRUGS (9)
  1. MIRTAZAPINE [Concomitant]
     Dosage: 30MCG PER DAY
     Dates: start: 20080929, end: 20110613
  2. AUGMENTIN '125' [Suspect]
     Route: 065
     Dates: start: 20110607
  3. PLAVIX [Concomitant]
     Dosage: 75MCG PER DAY
  4. CLARITHROMYCIN [Suspect]
     Route: 065
     Dates: start: 20110526, end: 20110603
  5. LAMOTRIGINE [Suspect]
     Route: 048
     Dates: start: 20110524, end: 20110608
  6. MADOPAR [Concomitant]
     Dosage: 187.5MCG PER DAY
     Dates: start: 20100211
  7. AGOMELATINE [Suspect]
     Route: 048
     Dates: end: 20110608
  8. MACROBID [Suspect]
     Route: 065
     Dates: start: 20110526, end: 20110603
  9. MEMANTINE HYDROCHLORIDE [Concomitant]
     Dosage: 20MCG PER DAY
     Dates: start: 20100906

REACTIONS (3)
  - CHROMATURIA [None]
  - JAUNDICE [None]
  - BODY TEMPERATURE INCREASED [None]
